FAERS Safety Report 7608828-1 (Version None)
Quarter: 2011Q3

REPORT INFORMATION
  Report Type: 
  Country: None (occurrence: None)
  Receive Date: 20110714
  Receipt Date: 20110707
  Transmission Date: 20111222
  Serious: Yes (Hospitalization, Other)
  Sender: FDA-Public Use
  Company Number: US-ALEXION-A201100641

PATIENT
  Sex: Female
  Weight: 61.2 kg

DRUGS (21)
  1. MONODOX [Concomitant]
     Indication: ROSACEA
     Dosage: 50 MG, PRN
     Route: 048
  2. DRISDOL [Concomitant]
     Dosage: 250000 LU, QMONTH
     Route: 048
  3. LOVENOX [Concomitant]
     Dosage: 53 ML, BID
     Route: 058
  4. PREDNISONE [Concomitant]
     Dosage: 10 MG AM/ 5 MG PM
     Route: 048
  5. SOLIRIS [Suspect]
     Indication: PAROXYSMAL NOCTURNAL HAEMOGLOBINURIA
     Dosage: UNK
     Route: 042
  6. LASIX [Concomitant]
     Dosage: 1/2 - 1 TAB 20 MG, QD
     Route: 048
  7. FOLIC ACID [Concomitant]
     Dosage: 1 MG, QD
     Route: 048
  8. OPIUM TINCTURE [Concomitant]
     Indication: DIARRHOEA
     Dosage: 0.4 ML, Q 8HR
     Route: 048
  9. POTASSIUM CHLORIDE [Concomitant]
     Dosage: 10-20 MEQ, PRN WITH LASIX
     Route: 048
  10. COREG [Concomitant]
     Dosage: 18.75 MG AM/ 12.5 MG PM
     Route: 048
  11. VASOTEC [Concomitant]
     Dosage: 5 MG, QD
     Route: 048
  12. FLORINEF ACETATE [Concomitant]
     Dosage: 0.1 MG, QD
     Route: 048
  13. ZANTAC [Concomitant]
     Dosage: 150 MG, BID
     Route: 048
  14. NITROGLYCERIN [Concomitant]
     Dosage: 0.4 MG, AS INSTRUCTED
     Route: 060
  15. PREDNISONE [Concomitant]
     Dosage: 20 MG, PRN
     Route: 048
  16. HUMULIN R [Concomitant]
     Indication: DIABETES MELLITUS
     Dosage: 4-5 UNITS PRN
     Route: 058
  17. NOVOLIN N [Concomitant]
     Dosage: 8 UNITS AM/4 UNITS PM
     Route: 058
  18. IMODIUM MULTI-SYMPTOM RELIEF [Concomitant]
     Dosage: 2 MG, QD
  19. CRESTOR [Concomitant]
     Dosage: 10 MG, QD
     Route: 048
  20. DOXYCYCLINE HYCLATE [Concomitant]
     Dosage: 100 MG, BID
     Route: 048
  21. CALCIUM CARBONATE [Concomitant]
     Dosage: 2 TABS BID
     Route: 048

REACTIONS (11)
  - CLOSTRIDIUM DIFFICILE COLITIS [None]
  - URINARY TRACT INFECTION [None]
  - HYPOTENSION [None]
  - TRANSAMINASES INCREASED [None]
  - CONFUSIONAL STATE [None]
  - ATRIAL FIBRILLATION [None]
  - HYPERGLYCAEMIA [None]
  - HAEMOLYSIS [None]
  - PNEUMONIA [None]
  - VOMITING [None]
  - NAUSEA [None]
